FAERS Safety Report 9641722 (Version 3)
Quarter: 2014Q2

REPORT INFORMATION
  Report Type: Spontaneous
  Country: US (occurrence: US)
  Receive Date: 20131023
  Receipt Date: 20140429
  Transmission Date: 20141212
  Serious: Yes (Hospitalization)
  Sender: FDA-Public Use
  Company Number: US-B.I. PHARMACEUTICALS,INC./RIDGEFIELD-2013-BI-33485BP

PATIENT
  Age: 56 Year
  Sex: Male
  Weight: 90.72 kg

DRUGS (14)
  1. PRADAXA [Suspect]
     Indication: ATRIAL FIBRILLATION
     Route: 065
     Dates: start: 20110926, end: 20111225
  2. DIGOXIN [Concomitant]
     Route: 065
     Dates: start: 201109, end: 201209
  3. MULTIVITAMIN [Concomitant]
     Route: 065
  4. VITAMIN D [Concomitant]
     Route: 065
  5. BUMEX [Concomitant]
     Route: 065
     Dates: start: 201108, end: 201207
  6. POTASSIUM [Concomitant]
     Route: 065
  7. ALPRAZOLAM [Concomitant]
     Route: 065
     Dates: start: 201104, end: 201202
  8. PERCOCET [Concomitant]
     Route: 065
  9. LIPITOR [Concomitant]
     Route: 065
  10. COREG [Concomitant]
     Route: 065
     Dates: start: 201109, end: 201207
  11. MAGNESIUM OXIDE [Concomitant]
     Route: 065
  12. PLAVIX [Concomitant]
     Route: 065
  13. DOCUSATE [Concomitant]
     Route: 065
  14. IBUPROFEN [Concomitant]
     Route: 065

REACTIONS (6)
  - Haematemesis [Unknown]
  - Gastrointestinal haemorrhage [Unknown]
  - Anaemia [Unknown]
  - Epistaxis [Unknown]
  - Anxiety [Unknown]
  - Depression [Unknown]
